FAERS Safety Report 18625288 (Version 2)
Quarter: 2022Q3

REPORT INFORMATION
  Report Type: Report from Study
  Country: CA (occurrence: CA)
  Receive Date: 20201216
  Receipt Date: 20220711
  Transmission Date: 20221027
  Serious: Yes (Hospitalization, Other)
  Sender: FDA-Public Use
  Company Number: CA-GLAXOSMITHKLINE-CA2020AMR247307

PATIENT

DRUGS (4)
  1. ALBUTEROL SULFATE [Suspect]
     Active Substance: ALBUTEROL SULFATE
     Indication: Product used for unknown indication
     Dosage: UNK
     Route: 055
     Dates: start: 20200301
  2. ZENHALE [Suspect]
     Active Substance: FORMOTEROL FUMARATE\MOMETASONE FUROATE
     Indication: Product used for unknown indication
     Dosage: UNK, BID
     Route: 055
     Dates: start: 20201001
  3. PREDNISONE [Suspect]
     Active Substance: PREDNISONE
     Indication: Product used for unknown indication
     Dosage: UNK, 1D, 50 MG TABLET
     Route: 048
     Dates: start: 20201001
  4. PREDNISONE [Suspect]
     Active Substance: PREDNISONE
     Dosage: UNK, QD
     Route: 048

REACTIONS (7)
  - Asthma [Unknown]
  - Full blood count abnormal [Unknown]
  - Dyspnoea [Unknown]
  - Wheezing [Unknown]
  - Loss of personal independence in daily activities [Unknown]
  - Sleep disorder due to a general medical condition [Unknown]
  - Therapeutic product effect incomplete [Unknown]
